FAERS Safety Report 14272459 (Version 2)
Quarter: 2018Q1

REPORT INFORMATION
  Report Type: Spontaneous
  Country: FR (occurrence: FR)
  Receive Date: 20171211
  Receipt Date: 20180329
  Transmission Date: 20180508
  Serious: Yes (Life-Threatening)
  Sender: FDA-Public Use
  Company Number: FR-OTSUKA-2015_002208

PATIENT
  Age: 58 Year
  Sex: Male
  Weight: 72.5 kg

DRUGS (3)
  1. DEPAKOTE [Suspect]
     Active Substance: DIVALPROEX SODIUM
     Indication: PSYCHOTIC DISORDER
     Dosage: 1 DF, UNK
     Route: 048
     Dates: end: 20150427
  2. ABILIFY [Suspect]
     Active Substance: ARIPIPRAZOLE
     Indication: PSYCHOTIC DISORDER
     Dosage: UNK
     Route: 048
     Dates: end: 20150427
  3. NOCTAMIDE [Suspect]
     Active Substance: LORMETAZEPAM
     Indication: PSYCHOTIC DISORDER
     Dosage: 2 DF, UNK
     Route: 048
     Dates: end: 20150427

REACTIONS (3)
  - Sepsis [Recovered/Resolved]
  - Pancytopenia [Recovered/Resolved]
  - Product use in unapproved indication [Unknown]

NARRATIVE: CASE EVENT DATE: 20150427
